FAERS Safety Report 22339834 (Version 1)
Quarter: 2023Q2

REPORT INFORMATION
  Report Type: Spontaneous
  Country: US (occurrence: None)
  Receive Date: 20230517
  Receipt Date: 20230517
  Transmission Date: 20230721
  Serious: Yes (Other)
  Sender: FDA-Public Use
  Company Number: None

PATIENT
  Age: 44 Year
  Sex: Female
  Weight: 85.28 kg

DRUGS (1)
  1. LEVOTHYROXINE SODIUM [Suspect]
     Active Substance: LEVOTHYROXINE SODIUM
     Indication: Hypothyroidism
     Dosage: FREQUENCY : DAILY;?
     Route: 048
     Dates: start: 20221218, end: 20230115

REACTIONS (6)
  - Irritability [None]
  - Agitation [None]
  - Headache [None]
  - Fatigue [None]
  - Drug intolerance [None]
  - Dizziness [None]

NARRATIVE: CASE EVENT DATE: 20230115
